FAERS Safety Report 6097164-3 (Version None)
Quarter: 2009Q1

REPORT INFORMATION
  Report Type: 
  Country: None (occurrence: None)
  Receive Date: 20090227
  Receipt Date: 20090227
  Transmission Date: 20090719
  Serious: Yes (Other)
  Sender: FDA-Public Use
  Company Number: A0770593A

PATIENT
  Age: 78 Year
  Sex: Female

DRUGS (2)
  1. ALLI [Suspect]
     Indication: WEIGHT LOSS DIET
     Route: 048
     Dates: start: 20090206, end: 20090220
  2. NITROFURANTOIN MACROCRYSTALLINE [Concomitant]

REACTIONS (2)
  - ABDOMINAL PAIN UPPER [None]
  - VAGINAL HAEMORRHAGE [None]
